FAERS Safety Report 8566551-3 (Version None)
Quarter: 2012Q3

REPORT INFORMATION
  Report Type: 
  Country: None (occurrence: None)
  Receive Date: 20120803
  Receipt Date: 20120119
  Transmission Date: 20120928
  Serious: No
  Sender: FDA-Public Use
  Company Number: US-ABBOTT-11P-163-0874080-00

PATIENT
  Sex: Male
  Weight: 90.8 kg

DRUGS (13)
  1. NIASPAN [Suspect]
     Dates: start: 20111001
  2. LOVAZA [Concomitant]
     Indication: PRODUCT USED FOR UNKNOWN INDICATION
  3. SIMVASTATIN [Concomitant]
     Indication: PRODUCT USED FOR UNKNOWN INDICATION
  4. NIASPAN [Suspect]
     Dosage: AT BEDTIME
     Dates: start: 20120105, end: 20120108
  5. NIASPAN [Suspect]
     Indication: PRODUCT USED FOR UNKNOWN INDICATION
     Dates: start: 20120105, end: 20120108
  6. ASPIRIN [Concomitant]
     Indication: PRODUCT USED FOR UNKNOWN INDICATION
     Dosage: 2 BEFORE NIASPAN
  7. NIASPAN [Suspect]
     Indication: HIGH DENSITY LIPOPROTEIN DECREASED
     Dosage: AT BEDTIME
     Dates: end: 20111201
  8. BYSTOLIC [Concomitant]
     Indication: PRODUCT USED FOR UNKNOWN INDICATION
  9. VENTURA [Concomitant]
     Indication: PRODUCT USED FOR UNKNOWN INDICATION
  10. NIASPAN [Suspect]
     Dates: start: 20120118
  11. PLAVIX [Concomitant]
     Indication: PRODUCT USED FOR UNKNOWN INDICATION
  12. NYQUIL [Concomitant]
     Indication: PRODUCT USED FOR UNKNOWN INDICATION
     Dates: start: 20120118
  13. NIASPAN [Suspect]
     Dosage: AT BEDTIME
     Dates: start: 20120118

REACTIONS (9)
  - WEIGHT INCREASED [None]
  - SKIN BURNING SENSATION [None]
  - FLUSHING [None]
  - RASH [None]
  - LARYNGITIS [None]
  - DIZZINESS [None]
  - PRURITUS [None]
  - INFLUENZA LIKE ILLNESS [None]
  - ABDOMINAL DISCOMFORT [None]
